FAERS Safety Report 9650808 (Version 1)
Quarter: 2013Q4

REPORT INFORMATION
  Report Type: Spontaneous
  Country: US (occurrence: None)
  Receive Date: 20131028
  Receipt Date: 20131028
  Transmission Date: 20140711
  Serious: Yes (Hospitalization)
  Sender: FDA-Public Use
  Company Number: None

PATIENT
  Age: 70 Year
  Sex: Female

DRUGS (1)
  1. ENBREL [Suspect]
     Dosage: 2XWEEK
     Route: 058
     Dates: start: 20080813, end: 20130925

REACTIONS (2)
  - Meningitis bacterial [None]
  - Meningitis viral [None]
